FAERS Safety Report 7978720-1 (Version None)
Quarter: 2011Q4

REPORT INFORMATION
  Report Type: 
  Country: None (occurrence: None)
  Receive Date: 20111206
  Receipt Date: 20111130
  Transmission Date: 20120403
  Serious: Yes (Hospitalization, Other)
  Sender: FDA-Public Use
  Company Number: 2010SP015904

PATIENT
  Age: 25 Year
  Sex: Female
  Weight: 45.3597 kg

DRUGS (8)
  1. ASPIRIN [Suspect]
     Indication: CEREBROVASCULAR ACCIDENT
  2. ACETAMINOPHEN [Concomitant]
  3. IBUPROFEN (ADVIL) [Concomitant]
  4. SUMATRIPTAN [Concomitant]
  5. CLOPIDOGREL [Suspect]
     Indication: THROMBOSIS
     Dates: start: 20070301
  6. ENOXAPARIN [Suspect]
     Indication: THROMBOSIS
     Dates: start: 20070301
  7. NAPROXEN [Concomitant]
  8. NUVARING [Suspect]
     Indication: CONTRACEPTION
     Dates: start: 20050101, end: 20070301

REACTIONS (37)
  - BREAST PROSTHESIS USER [None]
  - MALAISE [None]
  - CEREBROVASCULAR ACCIDENT [None]
  - VOMITING [None]
  - THROMBOSIS [None]
  - SINUS ARRHYTHMIA [None]
  - SCOLIOSIS [None]
  - POST PROCEDURAL HAEMORRHAGE [None]
  - CERVICAL DYSPLASIA [None]
  - VENTRICULAR SEPTAL DEFECT [None]
  - CONTUSION [None]
  - HYPERSENSITIVITY [None]
  - PARAESTHESIA [None]
  - MIGRAINE [None]
  - DIARRHOEA [None]
  - CEREBRAL INFARCTION [None]
  - RETROPERITONEAL HAEMORRHAGE [None]
  - HAEMORRHAGIC ANAEMIA [None]
  - HYPERTENSION [None]
  - VULVOVAGINAL PAIN [None]
  - FATIGUE [None]
  - CONDITION AGGRAVATED [None]
  - EMBOLIC STROKE [None]
  - IIIRD NERVE PARALYSIS [None]
  - URINARY TRACT INFECTION [None]
  - PYREXIA [None]
  - PALPITATIONS [None]
  - ANXIETY [None]
  - UTERINE HAEMORRHAGE [None]
  - SUPRAVENTRICULAR TACHYCARDIA [None]
  - NAUSEA [None]
  - ABDOMINAL DISTENSION [None]
  - MENORRHAGIA [None]
  - VAGINAL DISCHARGE [None]
  - SCRATCH [None]
  - VENTRICULAR EXTRASYSTOLES [None]
  - DISEASE RECURRENCE [None]
